FAERS Safety Report 8021063-0 (Version None)
Quarter: 2012Q1

REPORT INFORMATION
  Report Type: 
  Country: None (occurrence: None)
  Receive Date: 20120104
  Receipt Date: 20111222
  Transmission Date: 20120608
  Serious: Yes (Other)
  Sender: FDA-Public Use
  Company Number: CA-JNJFOC-20111212816

PATIENT
  Sex: Male
  Weight: 80 kg

DRUGS (4)
  1. REMICADE [Suspect]
     Indication: COLITIS ULCERATIVE
     Route: 042
     Dates: start: 20110113
  2. PERINDOPRIL ERBUMINE [Concomitant]
     Route: 065
  3. REMICADE [Suspect]
     Route: 042
     Dates: start: 20111222
  4. ASACOL [Concomitant]
     Route: 065

REACTIONS (6)
  - HYPERREFLEXIA [None]
  - VIITH NERVE PARALYSIS [None]
  - RASH [None]
  - DIZZINESS [None]
  - VISUAL ACUITY REDUCED [None]
  - BLOOD PRESSURE INCREASED [None]
